FAERS Safety Report 15448995 (Version 1)
Quarter: 2018Q3

REPORT INFORMATION
  Report Type: Spontaneous
  Country: US (occurrence: US)
  Receive Date: 20180926
  Receipt Date: 20180926
  Transmission Date: 20181010
  Serious: Yes (Other)
  Sender: FDA-Public Use
  Company Number: None

PATIENT
  Age: 54 Year
  Sex: Male

DRUGS (1)
  1. INV?DURVALUMAB (MEDI4736) [Suspect]
     Active Substance: DURVALUMAB
     Indication: SQUAMOUS CELL CARCINOMA
     Dosage: ?          OTHER FREQUENCY:SINGLE DOSE;?
     Route: 042
     Dates: start: 20171121, end: 20171205

REACTIONS (2)
  - Decubitus ulcer [None]
  - Debridement [None]

NARRATIVE: CASE EVENT DATE: 20171225
